FAERS Safety Report 11236476 (Version 2)
Quarter: 2015Q3

REPORT INFORMATION
  Report Type: Spontaneous
  Country: US (occurrence: US)
  Receive Date: 20150702
  Receipt Date: 20150726
  Transmission Date: 20151125
  Serious: Yes (Hospitalization)
  Sender: FDA-Public Use
  Company Number: US-009507513-1507USA000044

PATIENT
  Sex: Male

DRUGS (2)
  1. INVANZ [Suspect]
     Active Substance: ERTAPENEM SODIUM
     Indication: URINARY TRACT INFECTION
     Dosage: 1 G, QD
     Dates: end: 20150629
  2. LODOSYN [Concomitant]
     Active Substance: CARBIDOPA
     Route: 048

REACTIONS (2)
  - Confusional state [Unknown]
  - Myoclonus [Unknown]

NARRATIVE: CASE EVENT DATE: 20150629
